FAERS Safety Report 7396027-0 (Version None)
Quarter: 2011Q1

REPORT INFORMATION
  Report Type: 
  Country: None (occurrence: None)
  Receive Date: 20110325
  Receipt Date: 20110311
  Transmission Date: 20110831
  Serious: Yes (Other)
  Sender: FDA-Public Use
  Company Number: 2011MA001927

PATIENT
  Age: 77 Year
  Sex: Female

DRUGS (11)
  1. DICLOFENAC [Concomitant]
  2. ALBUTEROL SULFATE AUTOHALER [Concomitant]
  3. METFORMIN HYDROCHLORIDE [Suspect]
     Dates: start: 20110215
  4. MICONAZOLE [Concomitant]
  5. ISPAGHULA HUSK [Concomitant]
  6. BENDROFLUMETHIAZIDE [Concomitant]
  7. FENOFIBRATE [Concomitant]
  8. BUDESONIDE [Concomitant]
  9. GLICLAZIDE [Concomitant]
  10. CLOMIPRAMINE [Concomitant]
  11. HORMONE REPLACEMENT THERAPY [Concomitant]

REACTIONS (4)
  - LIVER FUNCTION TEST ABNORMAL [None]
  - EAR DISORDER [None]
  - CERUMEN IMPACTION [None]
  - EXOSTOSIS [None]
